FAERS Safety Report 7906337-3 (Version None)
Quarter: 2011Q4

REPORT INFORMATION
  Report Type: 
  Country: None (occurrence: None)
  Receive Date: 20111109
  Receipt Date: 20111109
  Transmission Date: 20120403
  Serious: Yes (Other)
  Sender: FDA-Public Use
  Company Number: None

PATIENT
  Age: 38 Year
  Sex: Female
  Weight: 60.2377 kg

DRUGS (4)
  1. BENLYSTA [Suspect]
     Indication: SYSTEMIC LUPUS ERYTHEMATOSUS
     Dosage: 591 MG 10 /KG 8/15/11 EVERY 2 WKS X3 THEN Q4 WKS IV
     Route: 042
     Dates: start: 20110914
  2. BENLYSTA [Suspect]
     Indication: SYSTEMIC LUPUS ERYTHEMATOSUS
     Dosage: 591 MG 10 /KG 8/15/11 EVERY 2 WKS X3 THEN Q4 WKS IV
     Route: 042
     Dates: start: 20110830
  3. BENLYSTA [Suspect]
     Indication: SYSTEMIC LUPUS ERYTHEMATOSUS
     Dosage: 591 MG 10 /KG 8/15/11 EVERY 2 WKS X3 THEN Q4 WKS IV
     Route: 042
     Dates: start: 20110815
  4. BENLYSTA [Suspect]
     Indication: SYSTEMIC LUPUS ERYTHEMATOSUS
     Dosage: 591 MG 10 /KG 8/15/11 EVERY 2 WKS X3 THEN Q4 WKS IV
     Route: 042
     Dates: start: 20111011

REACTIONS (9)
  - ANXIETY [None]
  - HEART RATE INCREASED [None]
  - INSOMNIA [None]
  - CHILLS [None]
  - DYSPNOEA [None]
  - CHEST DISCOMFORT [None]
  - PANIC ATTACK [None]
  - PALPITATIONS [None]
  - ABDOMINAL PAIN [None]
